FAERS Safety Report 11552802 (Version 3)
Quarter: 2015Q4

REPORT INFORMATION
  Report Type: Spontaneous
  Country: ES (occurrence: ES)
  Receive Date: 20150925
  Receipt Date: 20151103
  Transmission Date: 20160304
  Serious: Yes (Other)
  Sender: FDA-Public Use
  Company Number: ES-BIOGENIDEC-2015BI121078

PATIENT
  Age: 49 Year
  Sex: Female

DRUGS (7)
  1. ZINNAT [Concomitant]
     Active Substance: CEFUROXIME AXETIL
     Indication: NEUROGENIC BLADDER
  2. ZINNAT [Concomitant]
     Active Substance: CEFUROXIME AXETIL
     Indication: URINARY TRACT INFECTION
  3. OMEPRAZOLE. [Concomitant]
     Active Substance: OMEPRAZOLE
  4. BIPRETERAX [Concomitant]
     Active Substance: INDAPAMIDE\PERINDOPRIL
  5. NEURONTIN [Concomitant]
     Active Substance: GABAPENTIN
  6. FAMPYRA [Suspect]
     Active Substance: DALFAMPRIDINE
     Indication: PRODUCT USED FOR UNKNOWN INDICATION
     Route: 048
     Dates: start: 20150829, end: 20150902
  7. AMANTADINE [Concomitant]
     Active Substance: AMANTADINE

REACTIONS (3)
  - Substance-induced psychotic disorder [Recovered/Resolved]
  - Secondary progressive multiple sclerosis [Not Recovered/Not Resolved]
  - Urinary tract infection [Recovered/Resolved]

NARRATIVE: CASE EVENT DATE: 20150831
